FAERS Safety Report 25505961 (Version 1)
Quarter: 2025Q3

REPORT INFORMATION
  Report Type: Spontaneous
  Country: US (occurrence: US)
  Receive Date: 20250702
  Receipt Date: 20250702
  Transmission Date: 20251021
  Serious: Yes (Hospitalization)
  Sender: Alora Pharma
  Company Number: US-ACELLA PHARMACEUTICALS, LLC-2025ALO02313

PATIENT
  Age: 32 Year
  Sex: Female

DRUGS (5)
  1. BENZONATATE [Suspect]
     Active Substance: BENZONATATE
     Route: 048
  2. AMLODIPINE [Suspect]
     Active Substance: AMLODIPINE BESYLATE
     Route: 048
  3. TIZANIDINE [Suspect]
     Active Substance: TIZANIDINE
     Route: 048
  4. ATORVASTATIN [Suspect]
     Active Substance: ATORVASTATIN
     Route: 048
  5. SENNA [Suspect]
     Active Substance: SENNOSIDES
     Route: 048

REACTIONS (2)
  - Atrioventricular block first degree [Unknown]
  - Intentional overdose [Unknown]
